FAERS Safety Report 9847083 (Version 1)
Quarter: 2014Q1

REPORT INFORMATION
  Report Type: Spontaneous
  Country: HR (occurrence: HR)
  Receive Date: 20140127
  Receipt Date: 20140127
  Transmission Date: 20141002
  Serious: Yes (Other)
  Sender: FDA-Public Use
  Company Number: HR-PFIZER INC-2014022868

PATIENT
  Age: 52 Year
  Sex: Male
  Weight: 90 kg

DRUGS (4)
  1. CISPLATIN TEVA [Suspect]
     Indication: METASTATIC MALIGNANT MELANOMA
     Dosage: 45 MG, UNK
     Route: 041
     Dates: start: 20131120, end: 20131120
  2. DEXAMETHASON KRKA [Concomitant]
     Indication: PROPHYLAXIS OF NAUSEA AND VOMITING
     Dosage: 12 MG, UNK
     Route: 041
     Dates: start: 20131118, end: 20131120
  3. GRANISETRON [Concomitant]
     Dosage: 3 MG, UNK
     Route: 041
     Dates: start: 20131118, end: 20131120
  4. DIAZEPAM JADRAN [Concomitant]
     Dosage: 5 MG, UNK
     Route: 048
     Dates: start: 20131118, end: 20131120

REACTIONS (7)
  - Erythema [Recovered/Resolved]
  - Generalised erythema [Recovered/Resolved]
  - Swollen tongue [Recovered/Resolved]
  - Dyspnoea [Recovered/Resolved]
  - Pruritus [Recovered/Resolved]
  - Hypersensitivity [Recovered/Resolved]
  - Blood pressure increased [Unknown]
